FAERS Safety Report 8485484-4 (Version None)
Quarter: 2012Q2

REPORT INFORMATION
  Report Type: 
  Country: None (occurrence: None)
  Receive Date: 20120627
  Receipt Date: 20120627
  Transmission Date: 20120825
  Serious: Yes (Hospitalization, Other)
  Sender: FDA-Public Use
  Company Number: None

PATIENT
  Age: 23 Year
  Sex: Female
  Weight: 45.3597 kg

DRUGS (1)
  1. LYRICA [Suspect]
     Indication: FIBROMYALGIA
     Dosage: 75MG 2X DAILY PO
     Route: 048
     Dates: start: 20120615, end: 20120619

REACTIONS (4)
  - FEELING ABNORMAL [None]
  - PERFORMANCE STATUS DECREASED [None]
  - MUSCULOSKELETAL DISORDER [None]
  - MEMORY IMPAIRMENT [None]
